APPROVED DRUG PRODUCT: PRADAXA
Active Ingredient: DABIGATRAN ETEXILATE MESYLATE
Strength: EQ 20MG BASE/PACKET
Dosage Form/Route: PELLETS;ORAL
Application: N214358 | Product #001
Applicant: BOEHRINGER INGELHEIM PHARMACEUTICALS INC
Approved: Jun 21, 2021 | RLD: Yes | RS: No | Type: RX

PATENTS:
Patent 7932273 | Expires: Sep 7, 2025
Patent 7932273*PED | Expires: Mar 7, 2026